FAERS Safety Report 15384619 (Version 1)
Quarter: 2018Q3

REPORT INFORMATION
  Report Type: Spontaneous
  Country: US (occurrence: US)
  Receive Date: 20180907
  Receipt Date: 20180907
  Transmission Date: 20181010
  Serious: No
  Sender: FDA-Public Use
  Company Number: None

PATIENT
  Age: 80 Year
  Sex: Female

DRUGS (1)
  1. REPATHA [Suspect]
     Active Substance: EVOLOCUMAB
     Indication: HYPERLIPIDAEMIA
     Dosage: 420MG/3.5ML ONCE A MONTH
     Route: 058
     Dates: start: 20180423, end: 20180814

REACTIONS (1)
  - Pruritus [None]

NARRATIVE: CASE EVENT DATE: 20180830
